FAERS Safety Report 9140789 (Version 2)
Quarter: 2013Q1

REPORT INFORMATION
  Report Type: Report from Study
  Country: US (occurrence: JP)
  Receive Date: 20130305
  Receipt Date: 20130313
  Transmission Date: 20140127
  Serious: Yes (Death, Other)
  Sender: FDA-Public Use
  Company Number: US-CELGENEUS-087-50794-13024271

PATIENT
  Age: 87 Year
  Sex: Male
  Weight: 45 kg

DRUGS (12)
  1. VIDAZA [Suspect]
     Indication: MYELODYSPLASTIC SYNDROME
     Dosage: 41 MILLIGRAM/SQ. METER
     Route: 041
     Dates: start: 20120813, end: 20120820
  2. VIDAZA [Suspect]
     Dosage: 41 MILLIGRAM/SQ. METER
     Route: 041
     Dates: start: 20120914, end: 20120922
  3. CRAVIT [Concomitant]
     Indication: PRODUCT USED FOR UNKNOWN INDICATION
     Route: 065
     Dates: start: 20120815, end: 20120821
  4. CRAVIT [Concomitant]
     Route: 065
     Dates: start: 20120916, end: 20120922
  5. CALONAL [Concomitant]
     Indication: PRODUCT USED FOR UNKNOWN INDICATION
     Route: 065
     Dates: start: 20120814, end: 20120820
  6. CALONAL [Concomitant]
     Route: 065
     Dates: start: 20120916, end: 20120920
  7. FLAGYL [Concomitant]
     Indication: PRODUCT USED FOR UNKNOWN INDICATION
     Route: 065
     Dates: start: 20120827, end: 20120911
  8. CEFEPIME DIHYDROCHLORIDE [Concomitant]
     Indication: PRODUCT USED FOR UNKNOWN INDICATION
     Route: 065
     Dates: start: 20120821, end: 20120903
  9. VANCOMYCIN [Concomitant]
     Indication: PRODUCT USED FOR UNKNOWN INDICATION
     Route: 065
     Dates: start: 20120824, end: 20120830
  10. GRAN [Concomitant]
     Indication: PRODUCT USED FOR UNKNOWN INDICATION
     Route: 065
     Dates: start: 20120904, end: 20120907
  11. GRAN [Concomitant]
     Route: 065
     Dates: start: 20120916, end: 20120918
  12. FUNGUARD [Concomitant]
     Indication: PRODUCT USED FOR UNKNOWN INDICATION
     Route: 065
     Dates: start: 20120908

REACTIONS (1)
  - Corynebacterium sepsis [Fatal]
